FAERS Safety Report 14392429 (Version 4)
Quarter: 2018Q3

REPORT INFORMATION
  Report Type: Report from Study
  Country: US (occurrence: US)
  Receive Date: 20180116
  Receipt Date: 20180904
  Transmission Date: 20181010
  Serious: Yes (Hospitalization)
  Sender: FDA-Public Use
  Company Number: PHEH2018US001606

PATIENT
  Sex: Male

DRUGS (1)
  1. ENTRESTO [Suspect]
     Active Substance: SACUBITRIL\VALSARTAN
     Indication: CARDIAC DISORDER
     Route: 048

REACTIONS (7)
  - Dehydration [Unknown]
  - Back pain [Unknown]
  - Vision blurred [Unknown]
  - Vertigo [Unknown]
  - Pruritus [Unknown]
  - Sluggishness [Unknown]
  - Product use in unapproved indication [Unknown]
